FAERS Safety Report 6457879-1 (Version None)
Quarter: 2009Q4

REPORT INFORMATION
  Report Type: 
  Country: None (occurrence: None)
  Receive Date: 20091125
  Receipt Date: 20091119
  Transmission Date: 20100525
  Serious: Yes (Hospitalization, Disabling)
  Sender: FDA-Public Use
  Company Number: BR-ABBOTT-07P-020-0370931-00

PATIENT
  Sex: Female
  Weight: 68 kg

DRUGS (5)
  1. HUMIRA [Suspect]
     Indication: RHEUMATOID ARTHRITIS
     Route: 058
     Dates: start: 20060619, end: 20090801
  2. DICLOFENAC SODIUM [Concomitant]
     Indication: RHEUMATOID ARTHRITIS
     Route: 048
     Dates: start: 20070501
  3. DIOSMIN [Concomitant]
     Indication: CARDIOVASCULAR DISORDER
     Route: 048
     Dates: start: 20061101
  4. METHOTREXATE [Concomitant]
     Indication: RHEUMATOID ARTHRITIS
     Route: 048
  5. PARACETAMOL [Concomitant]
     Indication: PAIN
     Dosage: 1 PER DAY IF PATIENT HAS PAIN
     Route: 048

REACTIONS (5)
  - ANGIOPATHY [None]
  - OEDEMA PERIPHERAL [None]
  - OPTIC NERVE DISORDER [None]
  - THROMBOSIS [None]
  - VASCULITIS [None]
